FAERS Safety Report 5494195-9 (Version None)
Quarter: 2007Q4

REPORT INFORMATION
  Report Type: 
  Country: None (occurrence: None)
  Receive Date: 20071024
  Receipt Date: 20071016
  Transmission Date: 20080405
  Serious: Yes (Other)
  Sender: FDA-Public Use
  Company Number: PHBS2007JP17091

PATIENT
  Age: 72 Year
  Sex: Female

DRUGS (2)
  1. LAMISIL [Suspect]
     Indication: TINEA PEDIS
     Dosage: 125 MG, QD
     Route: 048
     Dates: start: 20070611, end: 20070614
  2. TAGAMET [Concomitant]
     Dates: start: 20070611

REACTIONS (2)
  - DYSPNOEA [None]
  - SPUTUM RETENTION [None]
